FAERS Safety Report 4590272-5 (Version None)
Quarter: 2005Q1

REPORT INFORMATION
  Report Type: 
  Country: None (occurrence: None)
  Receive Date: 20050217
  Receipt Date: 20050204
  Transmission Date: 20050727
  Serious: Yes (Hospitalization)
  Sender: FDA-Public Use
  Company Number: HQWYE149008FEB05

PATIENT
  Age: 23 Year
  Sex: Female
  Weight: 53.6 kg

DRUGS (10)
  1. RAPAMUNE [Suspect]
     Indication: PROPHYLAXIS AGAINST TRANSPLANT REJECTION
     Dosage: SEE IMAGE
     Route: 048
     Dates: start: 20040724, end: 20041119
  2. RAPAMUNE [Suspect]
     Indication: PROPHYLAXIS AGAINST TRANSPLANT REJECTION
     Dosage: SEE IMAGE
     Route: 048
     Dates: start: 20040307, end: 20050706
  3. RAPAMUNE [Suspect]
     Indication: PROPHYLAXIS AGAINST TRANSPLANT REJECTION
     Dosage: SEE IMAGE
     Route: 048
     Dates: start: 20041119
  4. NEORAL [Concomitant]
  5. AMLODIPINE BESYLATE [Concomitant]
  6. BACTRIM DS [Concomitant]
  7. CLINDAMYCIN PHOSPHATE [Concomitant]
  8. NYSTATIN [Concomitant]
  9. ASPIRIN [Concomitant]
  10. FERROUS SULFATE TAB [Concomitant]

REACTIONS (6)
  - ATELECTASIS [None]
  - COMPLICATIONS OF TRANSPLANT SURGERY [None]
  - POST PROCEDURAL COMPLICATION [None]
  - PYREXIA [None]
  - URETERIC REPAIR [None]
  - URETERIC STENOSIS [None]
